FAERS Safety Report 5260005-8 (Version None)
Quarter: 2007Q1

REPORT INFORMATION
  Report Type: 
  Country: None (occurrence: None)
  Receive Date: 20070309
  Receipt Date: 20060131
  Transmission Date: 20070707
  Serious: Yes (Other)
  Sender: FDA-Public Use
  Company Number: US-GLAXOSMITHKLINE-A0591417A

PATIENT
  Sex: Male

DRUGS (2)
  1. NICORETTE [Suspect]
     Dosage: 2MG SEE DOSAGE TEXT
     Dates: start: 19860101, end: 20020101
  2. EQUATE NICOTINE GUM 2MG [Suspect]
     Dosage: 2MG UNKNOWN
     Dates: start: 20020101

REACTIONS (2)
  - DRUG ABUSER [None]
  - HYPERTENSION [None]
